FAERS Safety Report 10745351 (Version 1)
Quarter: 2015Q1

REPORT INFORMATION
  Report Type: Spontaneous
  Country: US (occurrence: None)
  Receive Date: 20150127
  Receipt Date: 20150127
  Transmission Date: 20150721
  Serious: No
  Sender: FDA-Public Use
  Company Number: None

PATIENT
  Age: 50 Year
  Sex: Female

DRUGS (1)
  1. ENBREL [Suspect]
     Active Substance: ETANERCEPT
     Dates: start: 20150123

REACTIONS (6)
  - Heart rate increased [None]
  - Urticaria [None]
  - Flushing [None]
  - Injection site erythema [None]
  - Pyrexia [None]
  - Injection site swelling [None]

NARRATIVE: CASE EVENT DATE: 20150123
